FAERS Safety Report 17911392 (Version 1)
Quarter: 2020Q2

REPORT INFORMATION
  Report Type: Spontaneous
  Country: US (occurrence: US)
  Receive Date: 20200617
  Receipt Date: 20200617
  Transmission Date: 20200714
  Serious: Yes (Other)
  Sender: FDA-Public Use
  Company Number: None

PATIENT
  Age: 45 Year
  Sex: Male
  Weight: 76.5 kg

DRUGS (13)
  1. FLEXERIL [Concomitant]
     Active Substance: CYCLOBENZAPRINE HYDROCHLORIDE
  2. LISINOPRIL. [Concomitant]
     Active Substance: LISINOPRIL
  3. SILDENAFIL. [Concomitant]
     Active Substance: SILDENAFIL
  4. TYLENOL WITH CODEINE [Concomitant]
     Active Substance: ACETAMINOPHEN\CODEINE PHOSPHATE
  5. BASAGLAR [Concomitant]
     Active Substance: INSULIN GLARGINE
  6. SEROQUEL [Concomitant]
     Active Substance: QUETIAPINE FUMARATE
  7. MVI [Concomitant]
     Active Substance: VITAMINS
  8. VRAYLAR [Concomitant]
     Active Substance: CARIPRAZINE
  9. TRAZODONE [Concomitant]
     Active Substance: TRAZODONE HYDROCHLORIDE
  10. WELLBUTRIN SR [Concomitant]
     Active Substance: BUPROPION HYDROCHLORIDE
  11. FISH OIL [Concomitant]
     Active Substance: FISH OIL
  12. SILDENAFIL CITRATE 20MG TABLETS [Suspect]
     Active Substance: SILDENAFIL CITRATE
     Indication: ERECTILE DYSFUNCTION
     Dosage: ?          QUANTITY:1 TABLET(S);?
     Route: 048
     Dates: start: 20200520, end: 20200612
  13. HUMALOG [Concomitant]
     Active Substance: INSULIN LISPRO

REACTIONS (2)
  - Fatigue [None]
  - Somnolence [None]

NARRATIVE: CASE EVENT DATE: 20200612
